FAERS Safety Report 6120842-4 (Version None)
Quarter: 2009Q1

REPORT INFORMATION
  Report Type: 
  Country: None (occurrence: None)
  Receive Date: 20090312
  Receipt Date: 20090225
  Transmission Date: 20090719
  Serious: Yes (Hospitalization, Other)
  Sender: FDA-Public Use
  Company Number: 2009S1003480

PATIENT
  Age: 86 Year
  Sex: Male
  Weight: 60 kg

DRUGS (9)
  1. DIGITOXIN INJ [Suspect]
     Indication: ATRIAL FIBRILLATION
     Dosage: 0.07 MG; DAILY; ORAL
     Route: 048
     Dates: start: 20070101, end: 20070904
  2. METOPROLOL TARTRATE [Suspect]
     Indication: ATRIAL FIBRILLATION
     Dosage: 50 MG; DAILY; ORAL
     Route: 048
     Dates: start: 20070101, end: 20080904
  3. ASS SANDOZ [Concomitant]
  4. HYDROCHLOROTHIAZIDE [Concomitant]
  5. .. [Concomitant]
  6. PIPAMPERONE [Concomitant]
  7. RAMIPRIL [Concomitant]
  8. ZOLPIDEM [Concomitant]
  9. RIVASTIGMINE TARTRATE [Suspect]
     Indication: DEMENTIA
     Dosage: 9.5 MG DAILY, CUTANEOUS
     Route: 058
     Dates: start: 20070101, end: 20080904

REACTIONS (1)
  - BRADYARRHYTHMIA [None]
